FAERS Safety Report 25409317 (Version 1)
Quarter: 2025Q2

REPORT INFORMATION
  Report Type: Spontaneous
  Country: US (occurrence: US)
  Receive Date: 20250607
  Receipt Date: 20250607
  Transmission Date: 20250717
  Serious: Yes (Other)
  Sender: ALEXION PHARMACEUTICALS
  Company Number: US-ASTRAZENECA-202506USA003122US

PATIENT
  Age: 61 Year

DRUGS (4)
  1. TEZSPIRE [Suspect]
     Active Substance: TEZEPELUMAB-EKKO
     Route: 065
  2. TEZSPIRE [Suspect]
     Active Substance: TEZEPELUMAB-EKKO
  3. ENBREL [Suspect]
     Active Substance: ETANERCEPT
     Route: 065
  4. PREDNISONE [Suspect]
     Active Substance: PREDNISONE
     Route: 065

REACTIONS (6)
  - Fall [Unknown]
  - Asthma [Unknown]
  - Thoracic vertebral fracture [Unknown]
  - Dyspnoea [Unknown]
  - Pneumonia [Unknown]
  - Ankylosing spondylitis [Unknown]
